FAERS Safety Report 4659339-7 (Version None)
Quarter: 2005Q2

REPORT INFORMATION
  Report Type: 
  Country: None (occurrence: None)
  Receive Date: 20050510
  Receipt Date: 20050429
  Transmission Date: 20051028
  Serious: Yes (Congenital Anomaly)
  Sender: FDA-Public Use
  Company Number: 05P-167-0298951-00

PATIENT
  Sex: 0

DRUGS (5)
  1. NORVIR [Suspect]
  2. PROTHIADEN (DOTHEIPIN) (DOTHIEPIN) (DOTHIEPIN) [Suspect]
  3. ATAZANIR [Concomitant]
  4. TENOFOVIR [Concomitant]
  5. EMTRICITABINE [Concomitant]

REACTIONS (4)
  - CONGENITAL ANOMALY [None]
  - DRUG EXPOSURE DURING PREGNANCY [None]
  - FOETAL DISORDER [None]
  - PLEURAL EFFUSION [None]
